FAERS Safety Report 13023681 (Version 1)
Quarter: 2016Q4

REPORT INFORMATION
  Report Type: Spontaneous
  Country: US (occurrence: US)
  Receive Date: 20161213
  Receipt Date: 20161213
  Transmission Date: 20170207
  Serious: No
  Sender: FDA-Public Use
  Company Number: US-009507513-1612USA006504

PATIENT
  Age: 56 Year
  Sex: Female

DRUGS (6)
  1. LOVENOX [Concomitant]
     Active Substance: ENOXAPARIN SODIUM
     Indication: CEREBELLAR ARTERY THROMBOSIS
     Dosage: UNK UNK, BID
     Dates: start: 201610
  2. DECADRON [Suspect]
     Active Substance: DEXAMETHASONE
     Indication: CEREBELLAR ARTERY THROMBOSIS
     Dosage: UNK
     Route: 042
  3. DECADRON [Suspect]
     Active Substance: DEXAMETHASONE
     Dosage: 2 MG, BID
     Route: 042
     Dates: start: 20161015
  4. DECADRON [Suspect]
     Active Substance: DEXAMETHASONE
     Dosage: 5 MG, UNK
     Route: 042
     Dates: start: 20161013, end: 20161014
  5. CISPLATIN (+) FLUOROURACIL [Concomitant]
     Indication: PANCREATIC CARCINOMA METASTATIC
     Dosage: UNK
     Dates: start: 20161003
  6. METFORMIN [Suspect]
     Active Substance: METFORMIN HYDROCHLORIDE
     Indication: TYPE 2 DIABETES MELLITUS
     Route: 048

REACTIONS (2)
  - Blood glucose increased [Unknown]
  - Leukocytosis [Unknown]

NARRATIVE: CASE EVENT DATE: 201610
